FAERS Safety Report 9564019 (Version 1)
Quarter: 2013Q3

REPORT INFORMATION
  Report Type: Spontaneous
  Country: FR (occurrence: FR)
  Receive Date: 20130928
  Receipt Date: 20130928
  Transmission Date: 20140515
  Serious: Yes (Other)
  Sender: FDA-Public Use
  Company Number: FR-ROCHE-1282262

PATIENT
  Age: 87 Year
  Sex: Female

DRUGS (1)
  1. LUCENTIS [Suspect]
     Indication: AGE-RELATED MACULAR DEGENERATION
     Dosage: LAST INJECTION RECEIVED IN JUL 2013
     Route: 050
     Dates: start: 2013

REACTIONS (5)
  - Erythema [Unknown]
  - Ocular hyperaemia [Unknown]
  - Prurigo [Unknown]
  - Erythema of eyelid [Unknown]
  - Eyelid oedema [Unknown]
